FAERS Safety Report 18671735 (Version 1)
Quarter: 2020Q4

REPORT INFORMATION
  Report Type: Spontaneous
  Country: PE (occurrence: PE)
  Receive Date: 20201229
  Receipt Date: 20201229
  Transmission Date: 20210114
  Serious: Yes (Other)
  Sender: FDA-Public Use
  Company Number: PE-LUPIN PHARMACEUTICALS INC.-2020-10849

PATIENT
  Age: 24 Year
  Sex: Female

DRUGS (6)
  1. INSULIN NPH [INSULIN ISOPHANE BOVINE] [Suspect]
     Active Substance: INSULIN BEEF
     Indication: HYPERGLYCAEMIA
     Dosage: BID (40 UNITS BEFORE BREAKFAST AND AT BEDTIME)
     Route: 065
  2. RAPID-ACTING INSULIN [Suspect]
     Active Substance: INSULIN NOS
     Indication: HYPERGLYCAEMIA
     Dosage: UNK, (10 UNITS BEFORE EACH MEAL)
     Route: 065
  3. PREDNISONE. [Suspect]
     Active Substance: PREDNISONE
     Indication: CUSHING^S SYNDROME
     Dosage: 7.5 MILLIGRAM, QD
     Route: 065
  4. METHYLDOPA. [Suspect]
     Active Substance: METHYLDOPA
     Indication: HYPERTENSION
     Dosage: 3000 MILLIGRAM, QD
     Route: 065
  5. PREDNISONE. [Suspect]
     Active Substance: PREDNISONE
     Indication: STEROID THERAPY
     Dosage: 5 MILLIGRAM, QD
     Route: 065
  6. POTASSIUM CHLORIDE. [Suspect]
     Active Substance: POTASSIUM CHLORIDE
     Indication: HYPOKALAEMIA
     Dosage: UNK
     Route: 042

REACTIONS (2)
  - Stillbirth [Unknown]
  - Maternal exposure during pregnancy [Unknown]
